FAERS Safety Report 25940286 (Version 1)
Quarter: 2025Q4

REPORT INFORMATION
  Report Type: Spontaneous
  Country: CN (occurrence: CN)
  Receive Date: 20251020
  Receipt Date: 20251020
  Transmission Date: 20260117
  Serious: Yes (Death, Hospitalization)
  Sender: MYLAN
  Company Number: CN-MYLANLABS-2025M1088982

PATIENT
  Age: 18 Year
  Sex: Female

DRUGS (4)
  1. NITROGLYCERIN [Suspect]
     Active Substance: NITROGLYCERIN
     Indication: Haemodynamic instability
     Dosage: 0.1 MICROGRAM/KILOGRAM, QMINUTE
  2. EPINEPHRINE [Suspect]
     Active Substance: EPINEPHRINE
     Indication: Haemodynamic instability
     Dosage: 0.5 MILLIGRAM (2 INJECTIONS)
  3. EPINEPHRINE [Suspect]
     Active Substance: EPINEPHRINE
     Dosage: 1 MILLIGRAM (3 INJECTIONS)
  4. DOPAMINE [Suspect]
     Active Substance: DOPAMINE HYDROCHLORIDE
     Indication: Haemodynamic instability
     Dosage: 6 MICROGRAM/KILOGRAM, QMINUTE (INFUSION)

REACTIONS (1)
  - Drug ineffective [Fatal]
